FAERS Safety Report 4336159-4 (Version None)
Quarter: 2004Q1

REPORT INFORMATION
  Report Type: 
  Country: None (occurrence: None)
  Receive Date: 20040329
  Receipt Date: 20040107
  Transmission Date: 20041129
  Serious: No
  Sender: FDA-Public Use
  Company Number: USA040155966

PATIENT
  Age: 62 Year
  Sex: Female

DRUGS (6)
  1. STRATTERA [Suspect]
     Dosage: 40 MG/DAY
     Dates: start: 20031118, end: 20040103
  2. FLUOXETINE [Concomitant]
  3. GLOCUVANCE [Concomitant]
  4. TRANXENE [Concomitant]
  5. CELEBREX [Concomitant]
  6. MENEST [Concomitant]

REACTIONS (6)
  - DYSPNOEA [None]
  - FEELING HOT AND COLD [None]
  - HEADACHE [None]
  - HYPERHIDROSIS [None]
  - IRRITABILITY [None]
  - SELF ESTEEM DECREASED [None]
